FAERS Safety Report 7399999-3 (Version None)
Quarter: 2011Q2

REPORT INFORMATION
  Report Type: 
  Country: None (occurrence: None)
  Receive Date: 20110407
  Receipt Date: 20110325
  Transmission Date: 20111010
  Serious: Yes (Hospitalization, Other)
  Sender: FDA-Public Use
  Company Number: PHHY2011DE08133

PATIENT
  Sex: Female

DRUGS (10)
  1. PANTOPRAZOLE SODIUM [Concomitant]
     Dosage: 40 MG, 1-0-0
     Route: 048
  2. THYROXIN [Concomitant]
     Dosage: 125 UG, 1-0-0
     Route: 048
  3. VERAHEXAL [Concomitant]
     Dosage: 1/2-0-1/2
     Route: 048
  4. CALCIUM D SANDOZ [Concomitant]
     Route: 048
  5. ALENDRONIC ACID [Concomitant]
     Dosage: 70 MG ONCE WEEKLY
     Route: 048
  6. EUNOVA [Concomitant]
     Dosage: 0-1-0
     Route: 048
  7. COTAREG [Concomitant]
     Dosage: 1-0-0
  8. FEMARA [Suspect]
     Indication: BREAST CANCER
     Dosage: 2.5 MG, QD (0-0-1)
     Route: 048
     Dates: start: 20080424
  9. SIMVASTATIN [Concomitant]
     Dosage: 20 MG EVERY SECOND DAY
     Route: 048
  10. CORDAREX [Concomitant]
     Route: 048

REACTIONS (2)
  - OSTEOPOROSIS [None]
  - ORGANISING PNEUMONIA [None]
